FAERS Safety Report 9526831 (Version 3)
Quarter: 2013Q4

REPORT INFORMATION
  Report Type: Spontaneous
  Country: US (occurrence: US)
  Receive Date: 20130916
  Receipt Date: 20131121
  Transmission Date: 20140711
  Serious: Yes (Other)
  Sender: FDA-Public Use
  Company Number: PHEH2013US019300

PATIENT
  Sex: Male

DRUGS (4)
  1. TRILEPTAL [Suspect]
     Indication: CONVULSION
     Dosage: 300 MG, BID
  2. KEPPRA [Suspect]
     Indication: CONVULSION
     Dosage: 500 MG, BID
  3. ASPIRIN [Suspect]
     Dosage: 81 MG, UNK
  4. ANTIHYPERTENSIVE DRUGS [Concomitant]
     Indication: BLOOD PRESSURE
     Dosage: UNK UKN, UNK

REACTIONS (2)
  - Road traffic accident [Unknown]
  - Convulsion [Unknown]
